FAERS Safety Report 6694392-0 (Version None)
Quarter: 2010Q2

REPORT INFORMATION
  Report Type: 
  Country: None (occurrence: None)
  Receive Date: 20100421
  Receipt Date: 20100413
  Transmission Date: 20101027
  Serious: Yes (Hospitalization, Other)
  Sender: FDA-Public Use
  Company Number: TPA2010A02056

PATIENT
  Age: 57 Year
  Sex: Male
  Weight: 106.5953 kg

DRUGS (8)
  1. PIOGLITAZONE HCL [Suspect]
     Indication: TYPE 2 DIABETES MELLITUS
     Dosage: 30 MG, 1 IN 1 D, ORAL
     Route: 048
     Dates: start: 20091202, end: 20100306
  2. DUTOGLIPTIN (INVESTIGATIONAL DRUG) [Suspect]
     Indication: TYPE 2 DIABETES MELLITUS
  3. METOPROLOL (METOPROLOL) [Concomitant]
  4. ASPIRIN [Concomitant]
  5. MULTIVITAMIN [Concomitant]
  6. FISH OIL (FISH OIL) [Concomitant]
  7. DIOVAN [Concomitant]
  8. NEXIUM [Concomitant]

REACTIONS (1)
  - CORONARY ARTERY OCCLUSION [None]
